FAERS Safety Report 15786500 (Version 1)
Quarter: 2018Q4

REPORT INFORMATION
  Report Type: Spontaneous
  Country: US (occurrence: US)
  Receive Date: 20181212
  Receipt Date: 20181212
  Transmission Date: 20190205
  Serious: Yes (Hospitalization)
  Sender: FDA-Public Use
  Company Number: None

PATIENT
  Age: 4 Year
  Sex: Male

DRUGS (5)
  1. PROAIR HFA [Concomitant]
     Active Substance: ALBUTEROL SULFATE
  2. VITAMIN D3 DROP [Concomitant]
  3. AQUADEK [Concomitant]
  4. ZENPEP [Concomitant]
     Active Substance: PANCRELIPASE AMYLASE\PANCRELIPASE LIPASE\PANCRELIPASE PROTEASE
  5. SODIUM CHLORIDE 7% [Suspect]
     Active Substance: SODIUM CHLORIDE
     Indication: CYSTIC FIBROSIS
     Route: 055
     Dates: start: 20151028

REACTIONS (1)
  - Infective pulmonary exacerbation of cystic fibrosis [None]

NARRATIVE: CASE EVENT DATE: 201811
